FAERS Safety Report 5506141-X (Version None)
Quarter: 2007Q4

REPORT INFORMATION
  Report Type: 
  Country: None (occurrence: None)
  Receive Date: 20071101
  Receipt Date: 20071024
  Transmission Date: 20080405
  Serious: Yes (Other)
  Sender: FDA-Public Use
  Company Number: GXKR2007GB09097

PATIENT
  Age: 76 Year
  Sex: Female

DRUGS (6)
  1. TRIMETHOPRIM [Suspect]
     Indication: URINARY TRACT INFECTION
     Dosage: 200 MG, ORAL
     Route: 048
     Dates: start: 20060314, end: 20060315
  2. ATENOLOL [Concomitant]
  3. ATORVASTATIN (ATORVASTATIN) SYRUP [Concomitant]
  4. CITALOPRAM (CITALOPRAM) [Concomitant]
  5. FUROSEMIDE [Concomitant]
  6. WARFARIN SODIUM [Concomitant]

REACTIONS (4)
  - DIZZINESS [None]
  - FLUSHING [None]
  - NAUSEA [None]
  - PARAESTHESIA [None]
